FAERS Safety Report 25709832 (Version 3)
Quarter: 2025Q3

REPORT INFORMATION
  Report Type: Report from Study
  Country: US (occurrence: US)
  Receive Date: 20250821
  Receipt Date: 20250925
  Transmission Date: 20251021
  Serious: Yes (Other)
  Sender: SUNOVION
  Company Number: US-SUMITOMO PHARMA SWITZERLAND GMBH-2025SPA009998

PATIENT
  Age: 84 Year
  Sex: Male

DRUGS (14)
  1. ORGOVYX [Suspect]
     Active Substance: RELUGOLIX
     Indication: Prostate cancer
     Route: 048
  2. ERLEADA [Concomitant]
     Active Substance: APALUTAMIDE
  3. AMIODARONE [Concomitant]
     Active Substance: AMIODARONE
  4. ATORVASTATIN [Concomitant]
     Active Substance: ATORVASTATIN
  5. ELIQUIS [Concomitant]
     Active Substance: APIXABAN
  6. FINASTERIDE [Concomitant]
     Active Substance: FINASTERIDE
  7. METOPROLOL SUCCINATE [Concomitant]
     Active Substance: METOPROLOL SUCCINATE
  8. ZOFRAN [Concomitant]
     Active Substance: ONDANSETRON HYDROCHLORIDE
  9. SENNOSIDES [Concomitant]
     Active Substance: SENNOSIDES
  10. TAMSULOSIN [Concomitant]
     Active Substance: TAMSULOSIN
  11. ONDANSETRON [Concomitant]
     Active Substance: ONDANSETRON
  12. CEPHALEXIN [Concomitant]
     Active Substance: CEPHALEXIN
  13. NORCO [Concomitant]
     Active Substance: ACETAMINOPHEN\HYDROCODONE BITARTRATE
  14. HYDROCODONE [Concomitant]
     Active Substance: HYDROCODONE

REACTIONS (5)
  - Ureteral stent insertion [Unknown]
  - Cough [Unknown]
  - Nasopharyngitis [Unknown]
  - Rash [Unknown]
  - Incorrect dose administered [Recovered/Resolved]

NARRATIVE: CASE EVENT DATE: 20250904
